FAERS Safety Report 9176681 (Version 1)
Quarter: 2013Q1

REPORT INFORMATION
  Report Type: Spontaneous
  Country: DE (occurrence: None)
  Receive Date: 20130319
  Receipt Date: 20130319
  Transmission Date: 20140127
  Serious: Yes (Death)
  Sender: FDA-Public Use
  Company Number: 1638308

PATIENT
  Age: 57 Year
  Sex: Female
  Weight: 72 kg

DRUGS (5)
  1. GEMCITABINE HYDROCHLORIDE [Suspect]
     Indication: PANCREATIC CARCINOMA
     Route: 042
     Dates: start: 20120906
  2. PANCREATIN [Concomitant]
  3. BISOPROLOL [Concomitant]
  4. PIPERACILLIN SODIUM W/TAZOBACTAM SODIUM [Concomitant]
  5. CEFTRIAXONE SODIUM [Concomitant]

REACTIONS (6)
  - Cardiac arrest [None]
  - Dyspnoea [None]
  - Thrombocytopenia [None]
  - Renal failure acute [None]
  - Coombs negative haemolytic anaemia [None]
  - Microangiopathic haemolytic anaemia [None]
